FAERS Safety Report 9431843 (Version 1)
Quarter: 2013Q3

REPORT INFORMATION
  Report Type: Report from Study
  Country: KE (occurrence: KE)
  Receive Date: 20130731
  Receipt Date: 20130731
  Transmission Date: 20140515
  Serious: Yes (Death, Other)
  Sender: FDA-Public Use
  Company Number: PHHY2013KE073405

PATIENT
  Sex: Male

DRUGS (2)
  1. GLIVEC [Suspect]
     Indication: CHRONIC MYELOID LEUKAEMIA
     Dosage: 400 MG, UNK
     Dates: end: 20130625
  2. AUGMENTIN                               /UNK/ [Concomitant]
     Indication: SEPSIS
     Dosage: 1.2 G, 8 HOURLY
     Route: 042

REACTIONS (9)
  - Haemorrhage intracranial [Fatal]
  - Chronic myeloid leukaemia [Fatal]
  - Cholecystitis [Unknown]
  - Pyelonephritis [Unknown]
  - Thrombocytopenia [Unknown]
  - Platelet count decreased [Unknown]
  - International normalised ratio increased [Unknown]
  - Blast crisis in myelogenous leukaemia [Unknown]
  - Gingival bleeding [Unknown]
